FAERS Safety Report 10926298 (Version 1)
Quarter: 2015Q1

REPORT INFORMATION
  Report Type: Spontaneous
  Country: US (occurrence: None)
  Receive Date: 20150317
  Receipt Date: 20150317
  Transmission Date: 20150721
  Serious: Yes (Disabling, Other)
  Sender: FDA-Public Use
  Company Number: None

PATIENT
  Age: 45 Year
  Sex: Male
  Weight: 72.58 kg

DRUGS (3)
  1. PAXIL [Suspect]
     Active Substance: PAROXETINE HYDROCHLORIDE
     Indication: DEPRESSION
     Dosage: 1 TAB
     Route: 048
  2. PAXIL [Suspect]
     Active Substance: PAROXETINE HYDROCHLORIDE
     Indication: POST-TRAUMATIC STRESS DISORDER
     Dosage: 1 TAB
     Route: 048
  3. PANTOPRAZOLE [Concomitant]
     Active Substance: PANTOPRAZOLE SODIUM

REACTIONS (8)
  - Dyspepsia [None]
  - Musculoskeletal stiffness [None]
  - Urinary tract infection [None]
  - Dysuria [None]
  - Muscular weakness [None]
  - Fatigue [None]
  - Micturition urgency [None]
  - Hyperchlorhydria [None]

NARRATIVE: CASE EVENT DATE: 20150202
